FAERS Safety Report 10452624 (Version 1)
Quarter: 2014Q3

REPORT INFORMATION
  Report Type: Spontaneous
  Country: US (occurrence: None)
  Receive Date: 20140911
  Receipt Date: 20140911
  Transmission Date: 20150326
  Serious: Yes (Other)
  Sender: FDA-Public Use
  Company Number: QSC-2014-0584

PATIENT
  Age: 44 Year
  Sex: Male

DRUGS (8)
  1. PREDNISONE (PREDNISONE) [Suspect]
     Active Substance: PREDNISONE
     Route: 048
     Dates: end: 20140829
  2. CALCIUM (CALCIUM) [Concomitant]
     Active Substance: CALCIUM
  3. FOLIC ACID (FOLIC ACID) [Concomitant]
     Active Substance: FOLIC ACID
  4. VITAMIN B (VITAMIN B COMPLEX) [Concomitant]
  5. VITAMIN D /00107901/ (ERGOCALCIFEROL) [Concomitant]
  6. H.P. ACTHAR [Suspect]
     Active Substance: CORTICOTROPIN
     Indication: NEPHROTIC SYNDROME
     Dosage: 80 UNITS, BIW, SUBCUTANEOUS
     Route: 058
     Dates: start: 20140314, end: 20140829
  7. SYNTHROID [Concomitant]
     Active Substance: LEVOTHYROXINE SODIUM
  8. CELLCEPT /01275102/ (MYCOPHENOLATE MOFETIL) [Concomitant]

REACTIONS (1)
  - Osteonecrosis [None]

NARRATIVE: CASE EVENT DATE: 201407
